FAERS Safety Report 4591792-X (Version None)
Quarter: 2005Q1

REPORT INFORMATION
  Report Type: 
  Country: None (occurrence: None)
  Receive Date: 20050218
  Receipt Date: 20040810
  Transmission Date: 20050727
  Serious: Yes (Hospitalization)
  Sender: FDA-Public Use
  Company Number: 1

PATIENT
  Sex: Male
  Weight: 55.3388 kg

DRUGS (2)
  1. ABARELIX [Suspect]
     Indication: PROSTATE CANCER
     Dosage: 100 MG IM
     Route: 030
     Dates: start: 20040727, end: 20040727
  2. ABARELIX [Suspect]
     Dosage: 100 MG IM Q14 DAYS
     Route: 030
     Dates: start: 20040810, end: 20040810

REACTIONS (16)
  - ARRHYTHMIA [None]
  - BLOOD PRESSURE IMMEASURABLE [None]
  - BRADYCARDIA [None]
  - BURNING SENSATION [None]
  - COLD SWEAT [None]
  - COMA [None]
  - DYSGEUSIA [None]
  - FEELING ABNORMAL [None]
  - FOAMING AT MOUTH [None]
  - HYPERHIDROSIS [None]
  - HYPOTENSION [None]
  - LOSS OF CONSCIOUSNESS [None]
  - RASH ERYTHEMATOUS [None]
  - SKIN WARM [None]
  - URTICARIA [None]
  - VOMITING [None]
